FAERS Safety Report 21867440 (Version 2)
Quarter: 2023Q1

REPORT INFORMATION
  Report Type: Spontaneous
  Country: US (occurrence: US)
  Receive Date: 20230116
  Receipt Date: 20230213
  Transmission Date: 20230417
  Serious: Yes (Other)
  Sender: FDA-Public Use
  Company Number: US-HORMOSAN PHARMA GMBH-2023-00032

PATIENT
  Sex: Male
  Weight: 72.562 kg

DRUGS (3)
  1. QUETIAPINE [Suspect]
     Active Substance: QUETIAPINE
     Indication: Depression
     Dosage: 50 MILLIGRAM, QD, FROM PAST 2-3 YEARS
     Route: 065
  2. FLUOXETINE [Suspect]
     Active Substance: FLUOXETINE HYDROCHLORIDE
     Indication: Anxiety
     Dosage: 60 MILLIGRAM
     Route: 065
  3. FLUOXETINE [Suspect]
     Active Substance: FLUOXETINE HYDROCHLORIDE
     Indication: Obsessive-compulsive disorder
     Dosage: 40 MILLIGRAM
     Route: 065

REACTIONS (2)
  - Tardive dyskinesia [Unknown]
  - Product use in unapproved indication [Unknown]
